FAERS Safety Report 9492126 (Version 3)
Quarter: 2014Q3

REPORT INFORMATION
  Report Type: Spontaneous
  Country: US (occurrence: US)
  Receive Date: 20130830
  Receipt Date: 20140827
  Transmission Date: 20150326
  Serious: Yes (Hospitalization, Other)
  Sender: FDA-Public Use
  Company Number: US-009507513-1308USA012482

PATIENT
  Sex: Female
  Weight: 70.3 kg

DRUGS (1)
  1. NUVARING [Suspect]
     Active Substance: ETHINYL ESTRADIOL\ETONOGESTREL
     Indication: CONTRACEPTION
     Dosage: 0.12MG-0.015MG/24HR
     Route: 067
     Dates: start: 20090804, end: 20111124

REACTIONS (5)
  - Subarachnoid haemorrhage [Unknown]
  - Migraine [Unknown]
  - Cerebral venous thrombosis [Unknown]
  - Amenorrhoea [Unknown]
  - Drug intolerance [Unknown]

NARRATIVE: CASE EVENT DATE: 20111124
